FAERS Safety Report 7065674-8 (Version None)
Quarter: 2010Q4

REPORT INFORMATION
  Report Type: 
  Country: None (occurrence: None)
  Receive Date: 20101027
  Receipt Date: 20100916
  Transmission Date: 20110411
  Serious: Yes (Other)
  Sender: FDA-Public Use
  Company Number: KE-ROCHE-735796

PATIENT
  Age: 73 Year
  Sex: Female

DRUGS (2)
  1. BONIVA [Suspect]
     Indication: PRODUCT USED FOR UNKNOWN INDICATION
     Route: 065
     Dates: start: 20080801, end: 20100901
  2. CALCIUM [Concomitant]

REACTIONS (1)
  - STRESS FRACTURE [None]
